FAERS Safety Report 23414791 (Version 1)
Quarter: 2024Q1

REPORT INFORMATION
  Report Type: Spontaneous
  Country: US (occurrence: US)
  Receive Date: 20240118
  Receipt Date: 20240118
  Transmission Date: 20240410
  Serious: No
  Sender: FDA-Public Use
  Company Number: US-UniquePharma-US-2024UPLSPO00002

PATIENT
  Age: 80 Year
  Sex: Female
  Weight: 139 kg

DRUGS (1)
  1. CIPROFLOXACIN HYDROCHLORIDE [Suspect]
     Active Substance: CIPROFLOXACIN HYDROCHLORIDE
     Indication: Bacterial infection
     Route: 048
     Dates: start: 20231214, end: 20231220

REACTIONS (3)
  - Urticaria [Not Recovered/Not Resolved]
  - Confusional state [Recovering/Resolving]
  - Memory impairment [Not Recovered/Not Resolved]

NARRATIVE: CASE EVENT DATE: 20231201
